FAERS Safety Report 17840787 (Version 1)
Quarter: 2020Q2

REPORT INFORMATION
  Report Type: Spontaneous
  Country: DK (occurrence: DK)
  Receive Date: 20200529
  Receipt Date: 20200529
  Transmission Date: 20200714
  Serious: Yes (Life-Threatening, Hospitalization)
  Sender: FDA-Public Use
  Company Number: NVSC2020DK148209

PATIENT
  Age: 18 Year
  Sex: Male

DRUGS (3)
  1. GIONA [Concomitant]
     Indication: ASTHMA
     Dosage: 2 DF, QD (STYRKE: 200 MIKROGRAM/DOSIS) (EASYHALER)
     Route: 055
     Dates: start: 20180816
  2. MOXIFLOXACIN. [Suspect]
     Active Substance: MOXIFLOXACIN
     Indication: PNEUMONIA
     Dosage: 400 MG, QD
     Route: 048
     Dates: start: 20200225, end: 20200309
  3. CIPROFLOXACIN ^HEXAL^ [Suspect]
     Active Substance: CIPROFLOXACIN
     Indication: PNEUMONIA
     Dosage: 1000 MG, QD
     Route: 048
     Dates: start: 20200203

REACTIONS (1)
  - Tubulointerstitial nephritis [Not Recovered/Not Resolved]

NARRATIVE: CASE EVENT DATE: 20200306
